FAERS Safety Report 12827078 (Version 1)
Quarter: 2016Q4

REPORT INFORMATION
  Report Type: Spontaneous
  Country: US (occurrence: US)
  Receive Date: 20161006
  Receipt Date: 20161006
  Transmission Date: 20170207
  Serious: No
  Sender: FDA-Public Use
  Company Number: US-INDIVIOR LIMITED-INDV-088659-2016

PATIENT
  Age: 60 Year
  Sex: Female

DRUGS (2)
  1. SUBOXONE [Suspect]
     Active Substance: BUPRENORPHINE HYDROCHLORIDE\NALOXONE HYDROCHLORIDE
     Indication: DRUG DEPENDENCE
     Dosage: 20MG, DAILY, ABOUT 16 MONTHS
     Route: 060
     Dates: start: 201411, end: 20160229
  2. SUBOXONE [Suspect]
     Active Substance: BUPRENORPHINE HYDROCHLORIDE\NALOXONE HYDROCHLORIDE
     Dosage: 16MG, DAILY, ABOUT 4 DAYS
     Route: 060
     Dates: start: 20160301

REACTIONS (3)
  - Product preparation error [Recovered/Resolved]
  - Intentional underdose [Not Recovered/Not Resolved]
  - Abdominal hernia [Not Recovered/Not Resolved]

NARRATIVE: CASE EVENT DATE: 201411
